FAERS Safety Report 5221511-5 (Version None)
Quarter: 2007Q1

REPORT INFORMATION
  Report Type: 
  Country: None (occurrence: None)
  Receive Date: 20070126
  Receipt Date: 20070116
  Transmission Date: 20070707
  Serious: Yes (Other)
  Sender: FDA-Public Use
  Company Number: BR-PFIZER INC-2007005114

PATIENT
  Sex: Female

DRUGS (1)
  1. CELEBRA [Suspect]
     Indication: HEADACHE
     Route: 048

REACTIONS (2)
  - HEPATITIS C [None]
  - PAIN [None]
